FAERS Safety Report 20319499 (Version 1)
Quarter: 2022Q1

REPORT INFORMATION
  Report Type: Report from Study
  Country: BR (occurrence: BR)
  Receive Date: 20220110
  Receipt Date: 20220110
  Transmission Date: 20220423
  Serious: Yes (Other)
  Sender: FDA-Public Use
  Company Number: BR-JNJFOC-20220106039

PATIENT
  Sex: Female
  Weight: 91 kg

DRUGS (1)
  1. INFLIXIMAB [Suspect]
     Active Substance: INFLIXIMAB
     Indication: Rheumatoid arthritis
     Dosage: VIAL, 100 MG
     Route: 042
     Dates: start: 20190401, end: 202103

REACTIONS (4)
  - Tuberculosis [Unknown]
  - COVID-19 [Unknown]
  - Lung disorder [Unknown]
  - Lung operation [Unknown]
